FAERS Safety Report 5760285-6 (Version None)
Quarter: 2008Q2

REPORT INFORMATION
  Report Type: 
  Country: None (occurrence: None)
  Receive Date: 20080605
  Receipt Date: 20080528
  Transmission Date: 20081010
  Serious: Yes (Other)
  Sender: FDA-Public Use
  Company Number: US-GILEAD-2008-0016602

PATIENT
  Sex: Female
  Weight: 51.929 kg

DRUGS (4)
  1. LETAIRIS [Suspect]
     Indication: PULMONARY HYPERTENSION
  2. VENTAVIS [Suspect]
     Indication: PULMONARY HYPERTENSION
     Route: 055
     Dates: start: 20071201
  3. VENTAVIS [Suspect]
     Route: 055
     Dates: start: 20071127, end: 20071201
  4. REVATIO [Concomitant]

REACTIONS (11)
  - ABDOMINAL DISTENSION [None]
  - ASTHENIA [None]
  - CHEST DISCOMFORT [None]
  - CHRONIC SINUSITIS [None]
  - COUGH [None]
  - MUSCLE RIGIDITY [None]
  - MUSCULAR WEAKNESS [None]
  - OEDEMA PERIPHERAL [None]
  - OXYGEN SATURATION DECREASED [None]
  - PAIN IN EXTREMITY [None]
  - PRURITUS GENERALISED [None]
